FAERS Safety Report 4373562-0 (Version None)
Quarter: 2004Q1

REPORT INFORMATION
  Report Type: 
  Country: None (occurrence: None)
  Receive Date: 20040305
  Receipt Date: 20040129
  Transmission Date: 20041129
  Serious: Yes (Other)
  Sender: FDA-Public Use
  Company Number: 2004UW01614

PATIENT
  Age: 71 Year
  Sex: Female
  Weight: 41.7309 kg

DRUGS (6)
  1. CRESTOR [Suspect]
     Indication: HYPERCHOLESTEROLAEMIA
     Dates: start: 20040101
  2. LASIX [Concomitant]
  3. HYDROCHLOROTHIAZIDE [Concomitant]
  4. CLUCOPHAGE [Concomitant]
  5. AMARIL VACCINE [Concomitant]
  6. POTASSIUM [Concomitant]

REACTIONS (2)
  - DECREASED APPETITE [None]
  - NAUSEA [None]
